FAERS Safety Report 24877156 (Version 3)
Quarter: 2025Q2

REPORT INFORMATION
  Report Type: Spontaneous
  Country: JP (occurrence: JP)
  Receive Date: 20250123
  Receipt Date: 20250407
  Transmission Date: 20250716
  Serious: Yes (Hospitalization)
  Sender: AMGEN
  Company Number: JP-AMGEN-JPNSP2025010419

PATIENT
  Age: 80 Year
  Sex: Male

DRUGS (19)
  1. OTEZLA [Suspect]
     Active Substance: APREMILAST
     Indication: Psoriatic arthropathy
     Dosage: 30 MILLIGRAM, BID AFTER BREAKFAST AND DINNER
     Route: 048
  2. OTEZLA [Suspect]
     Active Substance: APREMILAST
     Dosage: 30 MILLIGRAM, QD
     Route: 048
  3. PREDNISOLONE [Concomitant]
     Active Substance: PREDNISOLONE
  4. NEXIUM [Concomitant]
     Active Substance: ESOMEPRAZOLE MAGNESIUM
  5. FEBUXOSTAT [Concomitant]
     Active Substance: FEBUXOSTAT
  6. DUTASTERIDE [Concomitant]
     Active Substance: DUTASTERIDE
  7. SAMSCA [Concomitant]
     Active Substance: TOLVAPTAN
  8. ALLEGRA [Concomitant]
     Active Substance: FEXOFENADINE HYDROCHLORIDE
  9. CARVEDILOL [Concomitant]
     Active Substance: CARVEDILOL
  10. SILODOSIN [Concomitant]
     Active Substance: SILODOSIN
  11. AMLODIPINE [Concomitant]
     Active Substance: AMLODIPINE BESYLATE
  12. Diart [Concomitant]
  13. DAYVIGO [Concomitant]
     Active Substance: LEMBOREXANT
  14. ROZEREM [Concomitant]
     Active Substance: RAMELTEON
  15. ENSURE [Concomitant]
     Active Substance: AMINO ACIDS\DEXTROSE\ELECTROLYTES NOS\SOYBEAN OIL\VITAMINS
  16. BETAMETHASONE DIPROPIONATE\CALCIPOTRIENE MONOHYDRATE [Concomitant]
     Active Substance: BETAMETHASONE DIPROPIONATE\CALCIPOTRIENE MONOHYDRATE
  17. CALONAL [Concomitant]
     Active Substance: ACETAMINOPHEN
  18. CARPERITIDE [Concomitant]
     Active Substance: CARPERITIDE
  19. LASIX [Concomitant]
     Active Substance: FUROSEMIDE

REACTIONS (4)
  - Pneumonia [Unknown]
  - Cardiogenic shock [Unknown]
  - Liver disorder [Unknown]
  - Renal disorder [Unknown]

NARRATIVE: CASE EVENT DATE: 20250101
